FAERS Safety Report 23081029 (Version 1)
Quarter: 2023Q4

REPORT INFORMATION
  Report Type: Spontaneous
  Country: CN (occurrence: CN)
  Receive Date: 20231018
  Receipt Date: 20231018
  Transmission Date: 20240110
  Serious: Yes (Life-Threatening, Hospitalization)
  Sender: FDA-Public Use
  Company Number: CN-FreseniusKabi-FK202316426

PATIENT
  Age: 66 Year
  Sex: Male
  Weight: 54 kg

DRUGS (3)
  1. PROPOFOL [Suspect]
     Active Substance: PROPOFOL
     Indication: General anaesthesia
     Route: 042
     Dates: start: 20231003, end: 20231003
  2. Remimazolam besylate for injection [Concomitant]
     Indication: General anaesthesia
     Route: 042
     Dates: start: 20231003, end: 20231003
  3. Nalbuphine Hydrochloride Injection [Concomitant]
     Indication: General anaesthesia
     Route: 042
     Dates: start: 20231003, end: 20231003

REACTIONS (3)
  - Anaphylactic shock [Recovered/Resolved]
  - Hypotension [Recovered/Resolved]
  - Rash erythematous [Recovered/Resolved]

NARRATIVE: CASE EVENT DATE: 20231003
